FAERS Safety Report 6163954-1 (Version None)
Quarter: 2009Q2

REPORT INFORMATION
  Report Type: 
  Country: None (occurrence: None)
  Receive Date: 20090422
  Receipt Date: 20090409
  Transmission Date: 20091009
  Serious: Yes (Hospitalization)
  Sender: FDA-Public Use
  Company Number: FR-TEVA-191364ISR

PATIENT
  Sex: Female

DRUGS (6)
  1. CARBOPLATIN [Suspect]
     Indication: OVARIAN NEOPLASM
     Route: 042
     Dates: start: 20081229, end: 20081229
  2. PACLITAXEL [Concomitant]
     Indication: OVARIAN NEOPLASM
     Route: 042
     Dates: start: 20081229, end: 20081229
  3. DEXCHLORPHENIRAMINE MALEATE [Concomitant]
     Indication: PREMEDICATION
     Route: 042
     Dates: start: 20081229, end: 20081229
  4. METHYLPREDNISOLONE SODIUM SUCCINATE [Concomitant]
     Indication: PREMEDICATION
     Route: 042
     Dates: start: 20081229, end: 20081229
  5. ONDANSETRON HYDROCHLORIDE [Concomitant]
     Indication: PREMEDICATION
     Route: 042
     Dates: start: 20081229, end: 20081229
  6. RANITIDINE [Concomitant]
     Indication: PREMEDICATION
     Route: 042

REACTIONS (5)
  - DRUG HYPERSENSITIVITY [None]
  - ERYTHEMA [None]
  - MUSCLE SPASMS [None]
  - NAUSEA [None]
  - VOMITING [None]
